FAERS Safety Report 15181872 (Version 3)
Quarter: 2018Q3

REPORT INFORMATION
  Report Type: Spontaneous
  Country: BR (occurrence: BR)
  Receive Date: 20180723
  Receipt Date: 20180827
  Transmission Date: 20181010
  Serious: Yes (Death, Hospitalization, Other)
  Sender: FDA-Public Use
  Company Number: BR-SA-2018SA195970

PATIENT
  Age: 29 Year
  Sex: Female
  Weight: 40 kg

DRUGS (4)
  1. TAXOTERE [Suspect]
     Active Substance: DOCETAXEL
     Dosage: 84.46 MG, Q3W
     Route: 042
     Dates: start: 20180521, end: 20180521
  2. NORIPURUM FOLICO [Concomitant]
     Active Substance: FOLIC ACID\IRON POLYMALTOSE
     Indication: PRODUCT USED FOR UNKNOWN INDICATION
     Dosage: UNK, BID
     Route: 065
  3. TAXOTERE [Suspect]
     Active Substance: DOCETAXEL
     Indication: GASTRIC CANCER
     Dosage: UNK
     Route: 042
     Dates: start: 20180312, end: 20180312
  4. TAXOTERE [Suspect]
     Active Substance: DOCETAXEL
     Dosage: 69.562 MG, Q3W
     Route: 042
     Dates: start: 20180625, end: 20180625

REACTIONS (9)
  - Leukocytosis [Unknown]
  - Fatigue [Recovered/Resolved]
  - Paraneoplastic syndrome [Unknown]
  - Paracentesis [Unknown]
  - Disease progression [Fatal]
  - Hyponatraemia [Recovered/Resolved]
  - Gastric neoplasm [Fatal]
  - Dehydration [Recovered/Resolved]
  - Diarrhoea [Unknown]

NARRATIVE: CASE EVENT DATE: 20160905
